FAERS Safety Report 19774972 (Version 2)
Quarter: 2021Q3

REPORT INFORMATION
  Report Type: Spontaneous
  Country: BR (occurrence: BR)
  Receive Date: 20210901
  Receipt Date: 20210909
  Transmission Date: 20211014
  Serious: Yes (Other)
  Sender: FDA-Public Use
  Company Number: BR-TEVA-2021-BR-1948814

PATIENT
  Age: 58 Year
  Sex: Male
  Weight: 45 kg

DRUGS (1)
  1. TEVAOXALI [Suspect]
     Active Substance: OXALIPLATIN
     Route: 042

REACTIONS (2)
  - Pruritus [Recovered/Resolved]
  - Hyperaemia [Recovered/Resolved]

NARRATIVE: CASE EVENT DATE: 20210811
